FAERS Safety Report 8155037-6 (Version None)
Quarter: 2012Q1

REPORT INFORMATION
  Report Type: 
  Country: None (occurrence: None)
  Receive Date: 20120221
  Receipt Date: 20120214
  Transmission Date: 20120608
  Serious: Yes (Hospitalization)
  Sender: FDA-Public Use
  Company Number: US-GILEAD-2012-0050868

PATIENT
  Sex: Male

DRUGS (6)
  1. SPIRIVA [Concomitant]
     Indication: BRONCHIECTASIS
     Dosage: 18 ?G, QD
     Route: 055
  2. ADVAIR DISKUS 100/50 [Concomitant]
     Indication: BRONCHIECTASIS
     Dosage: 2 DF, BID
     Route: 055
  3. AZTREONAM [Suspect]
     Indication: BRONCHIECTASIS
     Dosage: 75 UNK, TID
     Route: 055
     Dates: start: 20120202, end: 20120212
  4. PLACEBO [Suspect]
     Indication: BRONCHIECTASIS
     Dosage: UNK UNK, TID
     Route: 055
     Dates: start: 20111002, end: 20120103
  5. ALBUTEROL [Concomitant]
     Indication: BRONCHIECTASIS
     Dosage: 180 ?G, BID
     Route: 055
     Dates: start: 20110830
  6. OMNARIS [Concomitant]
     Indication: RHINITIS ALLERGIC
     Dosage: 2 DF, QD
     Route: 045
     Dates: start: 20111024

REACTIONS (1)
  - BRONCHIECTASIS [None]
